FAERS Safety Report 5216761-8 (Version None)
Quarter: 2007Q1

REPORT INFORMATION
  Report Type: 
  Country: None (occurrence: None)
  Receive Date: 20070118
  Receipt Date: 20070103
  Transmission Date: 20070707
  Serious: Yes (Other)
  Sender: FDA-Public Use
  Company Number: 2007RR-05083

PATIENT
  Age: 48 Year
  Sex: Female

DRUGS (7)
  1. AMOXICILLIN [Suspect]
     Dates: start: 20061011
  2. ENZIRA (INFLUENZA VACCINE) [Suspect]
     Indication: IMMUNISATION
     Dosage: INTRAMUSCULAR
     Route: 030
  3. HYDROXYZINE [Concomitant]
  4. INSULIN GLARGINE [Concomitant]
  5. NOVORAPID [Concomitant]
  6. SIMVASTATIN [Concomitant]
  7. LEVOTHYROXINE SODIUM [Concomitant]

REACTIONS (3)
  - ANOREXIA [None]
  - DIARRHOEA [None]
  - WEIGHT DECREASED [None]
